FAERS Safety Report 7023689-X (Version None)
Quarter: 2010Q3

REPORT INFORMATION
  Report Type: 
  Country: None (occurrence: None)
  Receive Date: 20100930
  Receipt Date: 20100916
  Transmission Date: 20110219
  Serious: Yes (Other)
  Sender: FDA-Public Use
  Company Number: GB-MYLANLABS-2010S1017018

PATIENT
  Age: 72 Year
  Sex: Male

DRUGS (2)
  1. FINASTERIDE [Suspect]
     Indication: PROSTATOMEGALY
     Route: 048
     Dates: start: 20100721, end: 20100729
  2. NEXIUM [Concomitant]
     Indication: PRODUCT USED FOR UNKNOWN INDICATION

REACTIONS (1)
  - FLATULENCE [None]
